FAERS Safety Report 14329645 (Version 4)
Quarter: 2018Q1

REPORT INFORMATION
  Report Type: Spontaneous
  Country: JP (occurrence: JP)
  Receive Date: 20171227
  Receipt Date: 20180222
  Transmission Date: 20180509
  Serious: Yes (Hospitalization)
  Sender: FDA-Public Use
  Company Number: JP-SA-2017SA262792

PATIENT
  Age: 68 Year
  Sex: Female
  Weight: 73.8 kg

DRUGS (14)
  1. METGLUCO [Concomitant]
     Active Substance: METFORMIN HYDROCHLORIDE
     Indication: DIABETES MELLITUS
     Route: 048
     Dates: start: 20171221
  2. DOVOBET [Concomitant]
     Active Substance: BETAMETHASONE\CALCIPOTRIENE
     Route: 062
     Dates: start: 20171222
  3. BUFFERIN A [Concomitant]
     Route: 048
     Dates: start: 20130801, end: 20171218
  4. CADUET [Concomitant]
     Active Substance: AMLODIPINE BESYLATE\ATORVASTATIN CALCIUM
     Route: 048
     Dates: start: 20171221
  5. BUFFERIN A [Concomitant]
     Route: 048
     Dates: start: 20171221
  6. DOVOBET [Concomitant]
     Active Substance: BETAMETHASONE\CALCIPOTRIENE
     Route: 062
     Dates: start: 20170627, end: 20171218
  7. AMARYL [Suspect]
     Active Substance: GLIMEPIRIDE
     Indication: DIABETES MELLITUS
     Route: 048
     Dates: start: 20171221
  8. BLINDED THERAPY [Suspect]
     Active Substance: INVESTIGATIONAL PRODUCT
     Indication: DIABETES MELLITUS
     Dosage: DOSE 5-20 U/DAY
     Route: 058
     Dates: start: 20170622, end: 20171218
  9. METGLUCO [Concomitant]
     Active Substance: METFORMIN HYDROCHLORIDE
     Indication: DIABETES MELLITUS
     Route: 048
     Dates: start: 20130801, end: 20171218
  10. AMARYL [Suspect]
     Active Substance: GLIMEPIRIDE
     Indication: DIABETES MELLITUS
     Route: 048
     Dates: start: 20161108, end: 20171218
  11. CADUET [Concomitant]
     Active Substance: AMLODIPINE BESYLATE\ATORVASTATIN CALCIUM
     Route: 048
     Dates: start: 20130801, end: 20171218
  12. LULICON [Concomitant]
     Active Substance: LULICONAZOLE
     Route: 062
     Dates: start: 20170627, end: 20171218
  13. BLINDED THERAPY [Suspect]
     Active Substance: INVESTIGATIONAL PRODUCT
     Indication: DIABETES MELLITUS
     Dosage: DOSE 5-20 U/DAY DOSE:20 UNIT(S)
     Route: 058
     Dates: start: 20171222, end: 20171226
  14. LULICON [Concomitant]
     Active Substance: LULICONAZOLE
     Route: 062
     Dates: start: 20171222

REACTIONS (1)
  - Meniscus injury [Recovered/Resolved]

NARRATIVE: CASE EVENT DATE: 20171218
